FAERS Safety Report 17580387 (Version 1)
Quarter: 2020Q1

REPORT INFORMATION
  Report Type: Spontaneous
  Country: US (occurrence: US)
  Receive Date: 20200320
  Receipt Date: 20200320
  Transmission Date: 20200409
  Serious: No
  Sender: FDA-Public Use
  Company Number: None

PATIENT
  Sex: Male

DRUGS (1)
  1. GLATIRAMTER ACETATE (12X1ML) [Suspect]
     Active Substance: GLATIRAMER ACETATE
     Indication: MULTIPLE SCLEROSIS
     Route: 058
     Dates: start: 202002

REACTIONS (8)
  - Vomiting [None]
  - Hepatic enzyme increased [None]
  - Nasopharyngitis [None]
  - Adverse drug reaction [None]
  - Headache [None]
  - Chills [None]
  - Pyrexia [None]
  - Night sweats [None]
